FAERS Safety Report 5118858-X (Version None)
Quarter: 2006Q3

REPORT INFORMATION
  Report Type: 
  Country: None (occurrence: None)
  Receive Date: 20060927
  Receipt Date: 20060914
  Transmission Date: 20061208
  Serious: Yes (Life-Threatening, Hospitalization, Other)
  Sender: FDA-Public Use
  Company Number: 2006111481

PATIENT
  Age: 53 Year
  Sex: Female
  Weight: 67.1324 kg

DRUGS (14)
  1. DIFLUCAN [Suspect]
     Indication: FUNGAL INFECTION
     Dates: start: 20051001
  2. VICODIN [Suspect]
     Dates: start: 20051001
  3. NARCAN [Suspect]
     Indication: DRUG LEVEL INCREASED
  4. NEXIUM [Concomitant]
  5. METHADONE HCL [Concomitant]
  6. KLONOPIN [Concomitant]
  7. COLACE (DOCUSATE SODIUM) [Concomitant]
  8. ZELNORM [Concomitant]
  9. TRICOR [Concomitant]
  10. ZETIA [Concomitant]
  11. ZOLOFT [Concomitant]
  12. MULTIVITAMIN [Concomitant]
  13. HYDROCORTISONE [Concomitant]
  14. LEVOTHYROXINE SODIUM [Concomitant]

REACTIONS (8)
  - CEREBROVASCULAR ACCIDENT [None]
  - DRUG LEVEL INCREASED [None]
  - DYSPNOEA [None]
  - LABORATORY TEST ABNORMAL [None]
  - LOSS OF CONSCIOUSNESS [None]
  - NARCOTIC INTOXICATION [None]
  - TREMOR [None]
  - VOMITING [None]
